FAERS Safety Report 15468261 (Version 2)
Quarter: 2020Q3

REPORT INFORMATION
  Report Type: Spontaneous
  Country: US (occurrence: US)
  Receive Date: 20181005
  Receipt Date: 20200923
  Transmission Date: 20201102
  Serious: Yes (Hospitalization, Other)
  Sender: FDA-Public Use
  Company Number: US-ASTRAZENECA-2018SF28288

PATIENT
  Age: 64 Year
  Sex: Female

DRUGS (8)
  1. SEROQUEL [Suspect]
     Active Substance: QUETIAPINE FUMARATE
     Indication: BIPOLAR DISORDER
     Route: 048
     Dates: start: 1998
  2. SEROQUEL [Suspect]
     Active Substance: QUETIAPINE FUMARATE
     Indication: BIPOLAR DISORDER
     Route: 048
     Dates: start: 2000
  3. SEROQUEL [Suspect]
     Active Substance: QUETIAPINE FUMARATE
     Indication: BIPOLAR DISORDER
     Route: 048
  4. METFORMIN [Concomitant]
     Active Substance: METFORMIN HYDROCHLORIDE
     Indication: DIABETES MELLITUS
     Route: 065
  5. SEROQUEL [Suspect]
     Active Substance: QUETIAPINE FUMARATE
     Indication: BIPOLAR DISORDER
     Route: 048
  6. FISH OIL [Concomitant]
     Active Substance: FISH OIL
     Indication: BLOOD TRIGLYCERIDES
     Dosage: UNKNOWN
     Route: 065
  7. SEROQUEL [Suspect]
     Active Substance: QUETIAPINE FUMARATE
     Indication: BIPOLAR DISORDER
     Route: 048
  8. GEODON [Concomitant]
     Active Substance: ZIPRASIDONE HYDROCHLORIDE\ZIPRASIDONE MESYLATE

REACTIONS (28)
  - Anger [Unknown]
  - Weight decreased [Recovered/Resolved]
  - Heart rate increased [Unknown]
  - Pneumonia [Recovered/Resolved]
  - Paranasal sinus benign neoplasm [Unknown]
  - Intentional product misuse [Unknown]
  - Blood triglycerides increased [Recovered/Resolved]
  - Malaise [Unknown]
  - Diarrhoea [Unknown]
  - Ageusia [Unknown]
  - Influenza [Recovered/Resolved]
  - Polyneuropathy [Unknown]
  - Glucose tolerance impaired [Unknown]
  - Weight increased [Recovered/Resolved]
  - Cataract [Unknown]
  - Bronchitis [Recovered/Resolved]
  - Sinonasal obstruction [Unknown]
  - Depression [Unknown]
  - Anxiety [Unknown]
  - Dacryostenosis acquired [Unknown]
  - Alanine aminotransferase increased [Unknown]
  - Musculoskeletal stiffness [Unknown]
  - Irritable bowel syndrome [Unknown]
  - Anosmia [Unknown]
  - Hepatic fibrosis [Unknown]
  - Intervertebral disc protrusion [Unknown]
  - Gastrooesophageal reflux disease [Unknown]
  - Nonalcoholic fatty liver disease [Unknown]

NARRATIVE: CASE EVENT DATE: 201911
